FAERS Safety Report 7099447-7 (Version None)
Quarter: 2010Q4

REPORT INFORMATION
  Report Type: 
  Country: None (occurrence: None)
  Receive Date: 20101112
  Receipt Date: 20081006
  Transmission Date: 20110411
  Serious: No
  Sender: FDA-Public Use
  Company Number: US-KINGPHARMUSA00001-K200801170

PATIENT
  Sex: Female

DRUGS (2)
  1. LEVOXYL [Suspect]
     Dates: start: 20080101
  2. ARMOUR THYROID [Suspect]
     Dosage: 50 MCG, UNK
     Dates: start: 20080101

REACTIONS (2)
  - BLOOD GLUCOSE DECREASED [None]
  - FEELING JITTERY [None]
